FAERS Safety Report 12683541 (Version 3)
Quarter: 2016Q4

REPORT INFORMATION
  Report Type: Spontaneous
  Country: JP (occurrence: JP)
  Receive Date: 20160825
  Receipt Date: 20161107
  Transmission Date: 20170207
  Serious: Yes (Death)
  Sender: FDA-Public Use
  Company Number: JP-ROCHE-1820256

PATIENT
  Age: 88 Year
  Sex: Female
  Weight: 40 kg

DRUGS (12)
  1. GRTPA [Suspect]
     Active Substance: ALTEPLASE
     Indication: CEREBRAL INFARCTION
     Dosage: 12 MILLION X 1V, 6 MILLION X 1V/DAY
     Route: 041
     Dates: start: 20160713, end: 20160713
  2. SULBACILLIN (JAPAN) [Concomitant]
     Active Substance: AMPICILLIN SODIUM\SULBACTAM SODIUM
     Indication: PNEUMONIA
     Route: 041
     Dates: start: 20160713
  3. SENNOSIDE [Concomitant]
     Active Substance: SENNOSIDES
     Route: 048
  4. NICARDIPINE HYDROCHLORIDE. [Concomitant]
     Active Substance: NICARDIPINE HYDROCHLORIDE
     Indication: HYPERTENSION
     Route: 041
     Dates: start: 20160713
  5. PRIMPERAN [Concomitant]
     Active Substance: METOCLOPRAMIDE HYDROCHLORIDE
     Route: 042
     Dates: start: 20160713
  6. BLOPRESS [Concomitant]
     Active Substance: CANDESARTAN CILEXETIL
     Route: 048
  7. RADICUT [Concomitant]
     Active Substance: EDARAVONE
     Route: 065
     Dates: start: 20160713, end: 20160715
  8. LANSOPRAZOLE. [Concomitant]
     Active Substance: LANSOPRAZOLE
     Indication: GASTROOESOPHAGEAL REFLUX DISEASE
     Route: 048
     Dates: start: 20160713
  9. NIFEDIPINE. [Concomitant]
     Active Substance: NIFEDIPINE
     Route: 048
  10. VITAMEDIN (JAPAN) [Concomitant]
     Route: 041
     Dates: start: 20160713
  11. GASTER [Concomitant]
     Active Substance: FAMOTIDINE
     Indication: PROPHYLAXIS
     Route: 051
     Dates: start: 20160713
  12. RANITIDINE. [Concomitant]
     Active Substance: RANITIDINE
     Route: 048

REACTIONS (1)
  - Myocardial infarction [Fatal]

NARRATIVE: CASE EVENT DATE: 20160713
